FAERS Safety Report 12598208 (Version 1)
Quarter: 2016Q3

REPORT INFORMATION
  Report Type: Spontaneous
  Country: GB (occurrence: GB)
  Receive Date: 20160727
  Receipt Date: 20160727
  Transmission Date: 20161109
  Serious: Yes (Hospitalization)
  Sender: FDA-Public Use
  Company Number: GB-ROCHE-1786726

PATIENT
  Age: 52 Year
  Weight: 81 kg

DRUGS (12)
  1. KADCYLA [Suspect]
     Active Substance: ADO-TRASTUZUMAB EMTANSINE
     Indication: PRODUCT USED FOR UNKNOWN INDICATION
     Route: 065
  2. LAPATINIB [Concomitant]
     Active Substance: LAPATINIB
  3. 5-FLUOROURACIL [Concomitant]
     Active Substance: FLUOROURACIL
  4. CAPECITABINE. [Suspect]
     Active Substance: CAPECITABINE
     Indication: PRODUCT USED FOR UNKNOWN INDICATION
     Route: 065
  5. EPIDOXORUBICIN [Concomitant]
     Active Substance: EPIRUBICIN HYDROCHLORIDE
  6. CYCLOPHOSPHAMIDE. [Concomitant]
     Active Substance: CYCLOPHOSPHAMIDE
  7. DENOSUMAB [Concomitant]
     Active Substance: DENOSUMAB
  8. LETROZOLE. [Concomitant]
     Active Substance: LETROZOLE
  9. HERCEPTIN [Suspect]
     Active Substance: TRASTUZUMAB
     Indication: PRODUCT USED FOR UNKNOWN INDICATION
     Route: 065
  10. DOCETAXEL. [Concomitant]
     Active Substance: DOCETAXEL
  11. RAMIPRIL. [Concomitant]
     Active Substance: RAMIPRIL
  12. ERIBULIN [Concomitant]
     Active Substance: ERIBULIN

REACTIONS (9)
  - Dyspepsia [Unknown]
  - Palmar-plantar erythrodysaesthesia syndrome [Unknown]
  - Paraesthesia [Recovering/Resolving]
  - Stomatitis [Unknown]
  - Ejection fraction decreased [Unknown]
  - Alopecia [Unknown]
  - Fatigue [Unknown]
  - Disease progression [Recovered/Resolved]
  - Dermatitis acneiform [Unknown]

NARRATIVE: CASE EVENT DATE: 20150603
